FAERS Safety Report 7594722-1 (Version None)
Quarter: 2011Q3

REPORT INFORMATION
  Report Type: 
  Country: None (occurrence: None)
  Receive Date: 20110707
  Receipt Date: 20110628
  Transmission Date: 20111222
  Serious: Yes (Other)
  Sender: FDA-Public Use
  Company Number: US-JNJFOC-20110612864

PATIENT
  Sex: Female
  Weight: 63.96 kg

DRUGS (12)
  1. ELMIRON [Suspect]
     Indication: CYSTITIS INTERSTITIAL
     Route: 048
     Dates: start: 20110606
  2. LORTAB [Concomitant]
     Indication: PAIN
     Dosage: 10-325 MG 3 TIMES A DAY
     Route: 048
  3. LUNESTA [Concomitant]
     Indication: SLEEP DISORDER
     Route: 048
  4. ENJUVIA [Concomitant]
     Indication: HORMONE REPLACEMENT THERAPY
     Route: 048
  5. ZYRTEC [Concomitant]
     Indication: MULTIPLE ALLERGIES
     Route: 048
  6. ULTRAM [Concomitant]
     Indication: PAIN
     Route: 048
  7. LYRICA [Suspect]
     Indication: PRODUCT USED FOR UNKNOWN INDICATION
     Route: 065
  8. VAGIFEM [Concomitant]
     Route: 067
  9. OPTIVAR [Concomitant]
     Indication: MULTIPLE ALLERGIES
     Route: 031
  10. ELMIRON [Suspect]
     Route: 048
     Dates: start: 19960101
  11. VALIUM [Concomitant]
     Indication: MUSCLE RELAXANT THERAPY
     Route: 048
  12. DEXILANT [Concomitant]
     Indication: GASTROOESOPHAGEAL REFLUX DISEASE
     Route: 048

REACTIONS (11)
  - IRON DEFICIENCY [None]
  - ATTENTION DEFICIT/HYPERACTIVITY DISORDER [None]
  - BLADDER PAIN [None]
  - CONSTIPATION [None]
  - VITAMIN D DEFICIENCY [None]
  - DEPRESSION [None]
  - BLOOD TRIGLYCERIDES INCREASED [None]
  - DRUG DOSE OMISSION [None]
  - MIGRAINE [None]
  - WEIGHT INCREASED [None]
  - HYPERTENSION [None]
